FAERS Safety Report 6522143-9 (Version None)
Quarter: 2009Q4

REPORT INFORMATION
  Report Type: 
  Country: None (occurrence: None)
  Receive Date: 20091229
  Receipt Date: 20091229
  Transmission Date: 20100525
  Serious: Yes (Life-Threatening)
  Sender: FDA-Public Use
  Company Number: None

PATIENT
  Age: 41 Year
  Sex: Female
  Weight: 81.6475 kg

DRUGS (1)
  1. THYROID TAB [Suspect]
     Indication: AUTOIMMUNE THYROIDITIS
     Dosage: 90 MG
     Dates: start: 20020101, end: 20090901

REACTIONS (6)
  - DRY SKIN [None]
  - HAIR TEXTURE ABNORMAL [None]
  - HYPOTHYROIDISM [None]
  - LETHARGY [None]
  - PRODUCT SUBSTITUTION ISSUE [None]
  - WEIGHT INCREASED [None]
